FAERS Safety Report 5035471-3 (Version None)
Quarter: 2006Q2

REPORT INFORMATION
  Report Type: 
  Country: None (occurrence: None)
  Receive Date: 20060525
  Receipt Date: 20060131
  Transmission Date: 20061013
  Serious: No
  Sender: FDA-Public Use
  Company Number: S06-USA-00342-01

PATIENT
  Age: 60 Year
  Sex: Female

DRUGS (5)
  1. CAMPRAL [Suspect]
     Indication: ALCOHOLISM
     Dosage: 666 MG TID PO
     Route: 048
     Dates: start: 20051219, end: 20060103
  2. CAMPRAL [Suspect]
     Indication: ALCOHOLISM
     Dosage: 666 MG BID PO
     Route: 048
     Dates: start: 20060104, end: 20060101
  3. CAMPRAL [Suspect]
     Indication: ALCOHOLISM
     Dosage: 333 MG BID PO
     Route: 048
     Dates: start: 20060101
  4. ATENOLOL [Concomitant]
  5. ZOLOFT [Concomitant]

REACTIONS (4)
  - ABDOMINAL DISTENSION [None]
  - DEPRESSION [None]
  - DIARRHOEA [None]
  - FLATULENCE [None]
